FAERS Safety Report 8862026 (Version 3)
Quarter: 2012Q4

REPORT INFORMATION
  Report Type: 
  Country: IT (occurrence: IT)
  Receive Date: 20121025
  Receipt Date: 20121128
  Transmission Date: 20130627
  Serious: Yes (Hospitalization)
  Sender: FDA-Public Use
  Company Number: IT-ROCHE-1148222

PATIENT
  Age: 77 Year
  Sex: Male

DRUGS (7)
  1. MABTHERA [Suspect]
     Indication: CHRONIC LYMPHOCYTIC LEUKAEMIA
     Route: 042
  2. MABTHERA [Suspect]
     Dosage: 4th cycle
     Route: 042
     Dates: start: 20120808, end: 20120808
  3. BENDAMUSTINE HYDROCHLORIDE [Suspect]
     Indication: CHRONIC LYMPHOCYTIC LEUKAEMIA
     Route: 042
     Dates: start: 20120809, end: 20120809
  4. TACHIPIRINA [Concomitant]
     Route: 048
     Dates: start: 20120808, end: 20120808
  5. NAVOBAN [Concomitant]
     Route: 042
     Dates: start: 20120809, end: 20120809
  6. SOLU-CORTEF [Concomitant]
     Route: 040
     Dates: start: 20120808, end: 20120808
  7. TRIMETON [Concomitant]
     Route: 042
     Dates: start: 20120808, end: 20120808

REACTIONS (4)
  - Chills [Recovered/Resolved]
  - Erythema [Recovered/Resolved]
  - Pyrexia [Recovered/Resolved]
  - Staphylococcal sepsis [Recovered/Resolved]
